FAERS Safety Report 5692329-4 (Version None)
Quarter: 2008Q2

REPORT INFORMATION
  Report Type: 
  Country: None (occurrence: None)
  Receive Date: 20080328
  Receipt Date: 20080108
  Transmission Date: 20081010
  Serious: Yes (Other)
  Sender: FDA-Public Use
  Company Number: HQWYE285124SEP07

PATIENT
  Age: 62 Year
  Sex: Male
  Weight: 59 kg

DRUGS (4)
  1. TORISEL [Suspect]
     Indication: RENAL CANCER METASTATIC
     Dosage: 25 MG 1X PER 1 WK, INTRAVENOUS
     Route: 042
     Dates: start: 20070808, end: 20070829
  2. KADIAN [Concomitant]
  3. OXYCODONE HCL [Concomitant]
  4. PERCOCET (OXYCODONE HYDROCHLORIDE/OXYCODONE TERPHTHALATE/PARACETAMOL) [Concomitant]

REACTIONS (1)
  - EPISTAXIS [None]
